FAERS Safety Report 23150876 (Version 1)
Quarter: 2023Q4

REPORT INFORMATION
  Report Type: Spontaneous
  Country: IN (occurrence: IN)
  Receive Date: 20231106
  Receipt Date: 20231106
  Transmission Date: 20240109
  Serious: Yes (Death, Life-Threatening, Hospitalization, Other)
  Sender: FDA-Public Use
  Company Number: IN-PFIZER INC-PV202300179562

PATIENT
  Age: 10 Year
  Sex: Male
  Weight: 25 kg

DRUGS (14)
  1. PREDNISOLONE [Suspect]
     Active Substance: PREDNISOLONE
     Indication: Takayasu^s arteritis
     Dosage: 2 MG/KG
  2. PRAZOSIN HYDROCHLORIDE [Suspect]
     Active Substance: PRAZOSIN HYDROCHLORIDE
     Indication: Renovascular hypertension
     Dosage: 0.2 MG/KG, DAILY
  3. PRAZOSIN HYDROCHLORIDE [Suspect]
     Active Substance: PRAZOSIN HYDROCHLORIDE
     Indication: Hypertensive encephalopathy
  4. NIFEDIPINE [Suspect]
     Active Substance: NIFEDIPINE
     Indication: Renal artery stenosis
     Dosage: 2.4 MG/KG, DAILY
  5. NIFEDIPINE [Suspect]
     Active Substance: NIFEDIPINE
     Indication: Renovascular hypertension
  6. NIFEDIPINE [Suspect]
     Active Substance: NIFEDIPINE
     Indication: Hypertensive encephalopathy
  7. LABETALOL [Suspect]
     Active Substance: LABETALOL\LABETALOL HYDROCHLORIDE
     Indication: Renovascular hypertension
     Dosage: 6 MG/KG, DAILY
  8. LABETALOL [Suspect]
     Active Substance: LABETALOL\LABETALOL HYDROCHLORIDE
     Indication: Hypertensive encephalopathy
  9. CLONIDINE [Suspect]
     Active Substance: CLONIDINE
     Indication: Hypertensive encephalopathy
     Dosage: 17 UG/KG, DAILY
  10. CLONIDINE [Suspect]
     Active Substance: CLONIDINE
     Indication: Renovascular hypertension
  11. HYDRALAZINE [Suspect]
     Active Substance: HYDRALAZINE HYDROCHLORIDE
     Indication: Renovascular hypertension
     Dosage: 0.75 MG/KG, DAILY
  12. HYDRALAZINE [Suspect]
     Active Substance: HYDRALAZINE HYDROCHLORIDE
     Indication: Hypertensive encephalopathy
  13. MYCOPHENOLATE MOFETIL HYDROCHLORIDE [Suspect]
     Active Substance: MYCOPHENOLATE MOFETIL HYDROCHLORIDE
     Indication: Takayasu^s arteritis
     Dosage: 900 MG, DAILY
  14. PHENYTOIN [Concomitant]
     Active Substance: PHENYTOIN
     Indication: Generalised tonic-clonic seizure
     Dosage: UNK

REACTIONS (2)
  - Drug ineffective [Fatal]
  - Off label use [Fatal]
